FAERS Safety Report 6818962-1 (Version None)
Quarter: 2010Q3

REPORT INFORMATION
  Report Type: 
  Country: None (occurrence: None)
  Receive Date: 20100707
  Receipt Date: 20100303
  Transmission Date: 20110219
  Serious: Yes (Hospitalization, Other)
  Sender: FDA-Public Use
  Company Number: US-ASTRAZENECA-2009SE16290

PATIENT
  Age: 8298 Day
  Sex: Male

DRUGS (2)
  1. SEROQUEL [Suspect]
     Route: 048
     Dates: start: 20050811
  2. DEPAKOTE ER [Concomitant]
     Dates: start: 20050811

REACTIONS (4)
  - DIABETES MELLITUS [None]
  - DIABETIC BULLOSIS [None]
  - DIABETIC KETOACIDOSIS [None]
  - TYPE 2 DIABETES MELLITUS [None]
